FAERS Safety Report 23948400 (Version 1)
Quarter: 2024Q2

REPORT INFORMATION
  Report Type: Spontaneous
  Country: US (occurrence: US)
  Receive Date: 20240607
  Receipt Date: 20240607
  Transmission Date: 20240716
  Serious: Yes (Hospitalization, Other)
  Sender: FDA-Public Use
  Company Number: US-AMGEN-USASP2024108044

PATIENT
  Age: 68 Year
  Sex: Female
  Weight: 51.3 kg

DRUGS (3)
  1. PROLIA [Suspect]
     Active Substance: DENOSUMAB
     Indication: Osteoporosis
     Dosage: 60 MILLIGRAM, Q6MO
     Route: 065
     Dates: start: 20240510
  2. VITAMIN D [Concomitant]
     Active Substance: VITAMIN D NOS
     Dosage: 50000 UNIT
  3. REMICADE [Concomitant]
     Active Substance: INFLIXIMAB
     Indication: Product used for unknown indication
     Dosage: UNK
     Route: 065
     Dates: start: 20240514

REACTIONS (16)
  - Neurosarcoidosis [Recovering/Resolving]
  - Blood calcium abnormal [Recovering/Resolving]
  - Electrolyte imbalance [Recovering/Resolving]
  - Hypotension [Recovering/Resolving]
  - Weight decreased [Recovering/Resolving]
  - Bell^s palsy [Unknown]
  - Elephantiasis [Unknown]
  - Deafness [Unknown]
  - Platelet count decreased [Unknown]
  - Mobility decreased [Unknown]
  - Oxygen saturation decreased [Unknown]
  - Injection site reaction [Unknown]
  - Asthenia [Unknown]
  - Back pain [Recovered/Resolved]
  - Gastrooesophageal reflux disease [Unknown]
  - Bone pain [Recovered/Resolved]

NARRATIVE: CASE EVENT DATE: 20240525
